FAERS Safety Report 5811692-4 (Version None)
Quarter: 2008Q3

REPORT INFORMATION
  Report Type: 
  Country: None (occurrence: None)
  Receive Date: 20080716
  Receipt Date: 20080711
  Transmission Date: 20090109
  Serious: Yes (Hospitalization, Congenital Anomaly)
  Sender: FDA-Public Use
  Company Number: A0687223A

PATIENT
  Sex: Female
  Weight: 2.5 kg

DRUGS (14)
  1. PAXIL [Suspect]
     Indication: POST-TRAUMATIC STRESS DISORDER
     Dosage: 20MG PER DAY
     Dates: start: 19970101
  2. PROVIGIL [Concomitant]
     Dates: start: 19970101
  3. PROGRAF [Concomitant]
     Dates: start: 19970101
  4. RAPAMUNE [Concomitant]
     Dates: start: 19990101
  5. VITAMIN TAB [Concomitant]
  6. BETAPACE [Concomitant]
  7. IMURAN [Concomitant]
  8. VITAMIN E [Concomitant]
  9. FOLIC ACID [Concomitant]
  10. ASPIRIN [Concomitant]
  11. CENTRUM [Concomitant]
  12. PRAVACHOL [Concomitant]
  13. VANCOMYCIN HCL [Concomitant]
  14. GENTAMICIN [Concomitant]

REACTIONS (6)
  - AORTIC DILATATION [None]
  - DRUG EXPOSURE DURING PREGNANCY [None]
  - DYSMORPHISM [None]
  - HEART DISEASE CONGENITAL [None]
  - MACROCEPHALY [None]
  - MARFAN'S SYNDROME [None]
